FAERS Safety Report 21749991 (Version 1)
Quarter: 2022Q4

REPORT INFORMATION
  Report Type: Spontaneous
  Country: BE (occurrence: BE)
  Receive Date: 20221219
  Receipt Date: 20221219
  Transmission Date: 20230112
  Serious: Yes (Hospitalization, Other)
  Sender: FDA-Public Use
  Company Number: None

PATIENT
  Sex: Female
  Weight: 55 kg

DRUGS (1)
  1. LEVONORGESTREL [Suspect]
     Active Substance: LEVONORGESTREL
     Indication: Contraception
     Dosage: 14?G/DAY
     Route: 015
     Dates: start: 20161206, end: 20191126

REACTIONS (17)
  - Eczema [Recovering/Resolving]
  - Loss of libido [Recovering/Resolving]
  - Dry skin [Recovering/Resolving]
  - Abnormal weight gain [Recovering/Resolving]
  - Vulvovaginal dryness [Recovering/Resolving]
  - Heavy menstrual bleeding [Recovering/Resolving]
  - Adrenal neoplasm [Recovering/Resolving]
  - Cortisol free urine increased [Recovering/Resolving]
  - Cushing^s syndrome [Recovering/Resolving]
  - Skin disorder [Recovering/Resolving]
  - Skin exfoliation [Recovering/Resolving]
  - Pruritus [Recovering/Resolving]
  - Skin striae [Recovering/Resolving]
  - Cortisol increased [Recovering/Resolving]
  - Dehydroepiandrosterone decreased [Recovering/Resolving]
  - Dry skin [Recovering/Resolving]
  - Pruritus [Recovering/Resolving]

NARRATIVE: CASE EVENT DATE: 20180101
